FAERS Safety Report 13265896 (Version 4)
Quarter: 2017Q3

REPORT INFORMATION
  Report Type: Report from Study
  Country: US (occurrence: US)
  Receive Date: 20170223
  Receipt Date: 20170914
  Transmission Date: 20171127
  Serious: Yes (Hospitalization)
  Sender: FDA-Public Use
  Company Number: US-EISAI MEDICAL RESEARCH-EC-2017-025060

PATIENT
  Age: 55 Year
  Sex: Female
  Weight: 76 kg

DRUGS (14)
  1. LENVIMA [Suspect]
     Active Substance: LENVATINIB
     Route: 048
     Dates: start: 2017
  2. LISINOPRIL. [Concomitant]
     Active Substance: LISINOPRIL
  3. COMPAZINE [Concomitant]
     Active Substance: PROCHLORPERAZINE MALEATE
  4. LENVIMA [Suspect]
     Active Substance: LENVATINIB
     Route: 048
     Dates: start: 2017, end: 2017
  5. ZOMETA [Concomitant]
     Active Substance: ZOLEDRONIC ACID
  6. DILAUDID [Concomitant]
     Active Substance: HYDROMORPHONE HYDROCHLORIDE
  7. LENVIMA [Suspect]
     Active Substance: LENVATINIB
     Indication: THYROID CANCER
     Route: 048
     Dates: start: 20161230, end: 20170213
  8. LENVIMA [Suspect]
     Active Substance: LENVATINIB
     Dosage: 2 WEEKS ON, 2 WEEKS OFF
     Route: 048
     Dates: start: 2017, end: 2017
  9. PEPCID [Concomitant]
     Active Substance: FAMOTIDINE
  10. OXYCODONE [Concomitant]
     Active Substance: OXYCODONE
  11. LENVIMA [Suspect]
     Active Substance: LENVATINIB
     Route: 048
     Dates: start: 201704, end: 20170425
  12. OXYCONTIN [Concomitant]
     Active Substance: OXYCODONE HYDROCHLORIDE
  13. LENVIMA [Suspect]
     Active Substance: LENVATINIB
     Route: 048
     Dates: start: 2017, end: 201704
  14. SENNA [Concomitant]
     Active Substance: SENNA LEAF\SENNOSIDES\SENNOSIDES A AND B

REACTIONS (18)
  - Dyspepsia [Unknown]
  - Oropharyngeal pain [Unknown]
  - Weight decreased [Unknown]
  - Fatigue [Not Recovered/Not Resolved]
  - Nasal ulcer [Unknown]
  - Cholecystitis [Unknown]
  - Musculoskeletal discomfort [Unknown]
  - Skin ulcer [Unknown]
  - Cancer pain [Not Recovered/Not Resolved]
  - Skin exfoliation [Unknown]
  - Dysphonia [Unknown]
  - Decreased appetite [Unknown]
  - Internal haemorrhage [Unknown]
  - Bone lesion [Unknown]
  - Vision blurred [Unknown]
  - Headache [Not Recovered/Not Resolved]
  - Mouth ulceration [Unknown]
  - Hypertension [Unknown]

NARRATIVE: CASE EVENT DATE: 2017
